FAERS Safety Report 21032237 (Version 2)
Quarter: 2022Q4

REPORT INFORMATION
  Report Type: Spontaneous
  Country: IL (occurrence: IL)
  Receive Date: 20220701
  Receipt Date: 20221122
  Transmission Date: 20230113
  Serious: Yes (Hospitalization, Other)
  Sender: FDA-Public Use
  Company Number: IL-BRISTOL-MYERS SQUIBB COMPANY-2022-061954

PATIENT
  Age: 81 Year
  Sex: Male
  Weight: 63 kg

DRUGS (2)
  1. OPDIVO [Suspect]
     Active Substance: NIVOLUMAB
     Indication: Malignant melanoma
     Dosage: DOSE : 63 MG (NIVO)/189 MG (IPI);     FREQ : Q3W (BOTH PRODUCTS)
     Route: 042
     Dates: start: 202204, end: 202206
  2. YERVOY [Suspect]
     Active Substance: IPILIMUMAB
     Indication: Malignant melanoma
     Route: 042
     Dates: start: 202204, end: 202206

REACTIONS (7)
  - Pneumocystis jirovecii pneumonia [Recovered/Resolved]
  - Seizure [Unknown]
  - Intestinal obstruction [Unknown]
  - Hyperthyroidism [Unknown]
  - Crystal deposit intestine [Unknown]
  - Cognitive disorder [Unknown]
  - Constipation [Not Recovered/Not Resolved]

NARRATIVE: CASE EVENT DATE: 20220602
